FAERS Safety Report 7107386-8 (Version None)
Quarter: 2010Q4

REPORT INFORMATION
  Report Type: 
  Country: None (occurrence: None)
  Receive Date: 20101111
  Receipt Date: 20101111
  Transmission Date: 20110411
  Serious: Yes (Hospitalization)
  Sender: FDA-Public Use
  Company Number: None

PATIENT
  Sex: Male
  Weight: 72 kg

DRUGS (2)
  1. HELIXATE FS [Suspect]
     Indication: FACTOR VIII DEFICIENCY
     Dosage: 1034 IU PRN BLEEDS I.V.
     Route: 042
     Dates: start: 20101108
  2. HELIXATE FS [Suspect]
     Indication: FACTOR VIII DEFICIENCY
     Dosage: 254 IU PRN BLEEDS I.V.
     Route: 042
     Dates: start: 20101108

REACTIONS (1)
  - CONVULSION [None]
